FAERS Safety Report 25082050 (Version 2)
Quarter: 2025Q2

REPORT INFORMATION
  Report Type: Spontaneous
  Country: FR (occurrence: FR)
  Receive Date: 20250317
  Receipt Date: 20250521
  Transmission Date: 20250716
  Serious: Yes (Other)
  Sender: UCB
  Company Number: None

PATIENT
  Age: 75 Year
  Sex: Male
  Weight: 78 kg

DRUGS (1)
  1. VIMPAT [Suspect]
     Active Substance: LACOSAMIDE
     Indication: Epilepsy
     Dosage: 2 DOSAGE FORM, ONCE DAILY (QD)
     Route: 048
     Dates: start: 20250112, end: 202504

REACTIONS (2)
  - Suicidal behaviour [Recovered/Resolved]
  - Behaviour disorder [Recovered/Resolved]

NARRATIVE: CASE EVENT DATE: 20250101
